FAERS Safety Report 24787370 (Version 1)
Quarter: 2024Q4

REPORT INFORMATION
  Report Type: Report from Study
  Country: DE (occurrence: DE)
  Receive Date: 20241230
  Receipt Date: 20241230
  Transmission Date: 20250115
  Serious: Yes (Hospitalization, Other)
  Sender: NOVARTIS
  Company Number: DE-002147023-NVSC2024DE097550

PATIENT
  Age: 38 Year
  Sex: Female
  Weight: 71 kg

DRUGS (1)
  1. ILARIS [Suspect]
     Active Substance: CANAKINUMAB
     Indication: Pneumonia
     Dosage: 150 MG
     Route: 058
     Dates: start: 20230626

REACTIONS (3)
  - Radius fracture [Recovered/Resolved]
  - Gastritis [Not Recovered/Not Resolved]
  - Cervical dysplasia [Not Recovered/Not Resolved]

NARRATIVE: CASE EVENT DATE: 20231209
